FAERS Safety Report 9200779 (Version 1)
Quarter: 2013Q2

REPORT INFORMATION
  Report Type: Spontaneous
  Country: DE (occurrence: DE)
  Receive Date: 20130401
  Receipt Date: 20130401
  Transmission Date: 20140414
  Serious: Yes (Other)
  Sender: FDA-Public Use
  Company Number: DE-009507513-1303DEU014142

PATIENT
  Age: 14 Year
  Sex: Female

DRUGS (1)
  1. NUVARING [Suspect]
     Dosage: UNK
     Route: 067
     Dates: start: 201207, end: 201303

REACTIONS (4)
  - Anaphylactic shock [Unknown]
  - Gastrointestinal injury [Unknown]
  - Metrorrhagia [Recovering/Resolving]
  - Dysmenorrhoea [Recovering/Resolving]
